FAERS Safety Report 8836919 (Version 2)
Quarter: 2012Q4

REPORT INFORMATION
  Report Type: 
  Country: US (occurrence: US)
  Receive Date: 20121012
  Receipt Date: 20121102
  Transmission Date: 20130627
  Serious: Yes (Other)
  Sender: FDA-Public Use
  Company Number: US-BAYER-2012-105994

PATIENT
  Age: 93 Year
  Sex: Female
  Weight: 58.06 kg

DRUGS (4)
  1. XARELTO [Suspect]
     Indication: CEREBROVASCULAR ACCIDENT PROPHYLAXIS
     Dosage: 15 mg, QD
     Route: 048
  2. XARELTO [Interacting]
     Indication: ATRIAL FIBRILLATION
     Dosage: 4.25 mg, QD
  3. ACETYLSALICYLIC ACID({=100 MG) [Interacting]
     Indication: ANTIPLATELET THERAPY
     Dosage: 81 mg, UNK
  4. CLOPIDOGREL [Concomitant]
     Indication: ANTIPLATELET THERAPY

REACTIONS (6)
  - Haemorrhoidal haemorrhage [Recovered/Resolved]
  - Gastrointestinal haemorrhage [Recovering/Resolving]
  - Drug administration error [Unknown]
  - Incorrect dose administered [None]
  - Treatment noncompliance [None]
  - Haemoglobin decreased [None]
